FAERS Safety Report 20703052 (Version 2)
Quarter: 2022Q2

REPORT INFORMATION
  Report Type: Spontaneous
  Country: SE (occurrence: SE)
  Receive Date: 20220413
  Receipt Date: 20220527
  Transmission Date: 20220720
  Serious: Yes (Other)
  Sender: FDA-Public Use
  Company Number: None

PATIENT
  Age: 65 Year
  Sex: Male

DRUGS (11)
  1. TREMFYA [Suspect]
     Active Substance: GUSELKUMAB
     Indication: Psoriasis
     Dosage: 100 MG 100 MG WEEK 0, WEEK 4 AND THEN EVERY OTHER MONTH.
     Route: 065
     Dates: start: 20220128, end: 20220309
  2. TREMFYA [Suspect]
     Active Substance: GUSELKUMAB
  3. VICTOZA [Concomitant]
     Active Substance: LIRAGLUTIDE
     Dosage: 6 MG/ML 1,2 MG PER DAY
     Dates: start: 20170412
  4. EZETIMIBE [Concomitant]
     Active Substance: EZETIMIBE
     Dosage: 10 MG 1X1
     Route: 048
     Dates: start: 20171123
  5. Amlodipin Sandoz [Concomitant]
     Dosage: 5 MG 1X1
     Route: 048
     Dates: start: 20181211
  6. LOSARSTAD [Concomitant]
     Dosage: 100 MG 1X1
     Route: 048
     Dates: start: 20171123
  7. ISOPHANE INSULIN [Concomitant]
     Active Substance: INSULIN NOS
     Dosage: 100 IU/ML 40 U MORNING 60 U AFTERNOON
     Route: 058
     Dates: start: 20171123
  8. ESCITALOPRAM [Concomitant]
     Active Substance: ESCITALOPRAM OXALATE
     Dosage: 10 MG 1X1
     Route: 048
     Dates: start: 20191209
  9. NORMORIX MITE [Concomitant]
     Active Substance: AMILORIDE HYDROCHLORIDE\HYDROCHLOROTHIAZIDE
     Dosage: 5 MG/50 MG 1X1
     Route: 048
     Dates: start: 20171123
  10. ALFUZOSIN RIVOPHARM [Concomitant]
     Dosage: 10 MG 1X1
     Route: 048
     Dates: start: 20180910
  11. ATORVASTATIN [Concomitant]
     Active Substance: ATORVASTATIN
     Dosage: 40 MG 1X1
     Route: 048
     Dates: start: 20171123

REACTIONS (1)
  - Myalgia [Recovering/Resolving]

NARRATIVE: CASE EVENT DATE: 20220220
